FAERS Safety Report 9372109 (Version 1)
Quarter: 2013Q2

REPORT INFORMATION
  Report Type: Spontaneous
  Country: GB (occurrence: None)
  Receive Date: 20130624
  Receipt Date: 20130624
  Transmission Date: 20140414
  Serious: Yes (Hospitalization)
  Sender: FDA-Public Use
  Company Number: 1757716

PATIENT
  Age: 55 Year
  Sex: Female

DRUGS (12)
  1. VINCRISTINE SULFATE [Suspect]
     Indication: B-CELL LYMPHOMA
     Route: 042
     Dates: start: 20130123
  2. MONOCLONAL ANTIBODIES [Suspect]
     Indication: B-CELL LYMPHOMA
     Route: 042
     Dates: start: 20130123
  3. CYCLOPHOSPHAMIDE [Suspect]
     Indication: B-CELL LYMPHOMA
     Route: 042
     Dates: start: 20130123
  4. PREDNISONE [Concomitant]
  5. MORPHINE SULPHATE [Concomitant]
  6. POLYETHYLENE GLYCOL [Concomitant]
  7. SENNA /00142201 [Concomitant]
  8. MORPHINE SULFATE [Concomitant]
  9. PREGABALIN [Concomitant]
  10. CHLORPHENIRAMINE MALEATE [Concomitant]
  11. PARACETAMOL [Concomitant]
  12. DALTEPARIN SODIUM [Concomitant]

REACTIONS (1)
  - Sepsis [None]
